FAERS Safety Report 6262808-X (Version None)
Quarter: 2009Q3

REPORT INFORMATION
  Report Type: 
  Country: None (occurrence: None)
  Receive Date: 20090709
  Receipt Date: 20090706
  Transmission Date: 20100115
  Serious: Yes (Hospitalization)
  Sender: FDA-Public Use
  Company Number: IL-MERCK-0907ISR00009

PATIENT
  Age: 89 Year
  Sex: Female

DRUGS (3)
  1. INVANZ [Suspect]
     Indication: KIDNEY INFECTION
     Route: 065
     Dates: start: 20090701, end: 20090704
  2. LOSARTAN POTASSIUM [Concomitant]
     Route: 048
  3. PENEDIL [Concomitant]
     Route: 065

REACTIONS (6)
  - CHILLS [None]
  - HALLUCINATION [None]
  - MENTAL IMPAIRMENT [None]
  - PARAESTHESIA [None]
  - PYREXIA [None]
  - VOMITING [None]
